FAERS Safety Report 8733750 (Version 2)
Quarter: 2012Q4

REPORT INFORMATION
  Report Type: 
  Country: US (occurrence: US)
  Receive Date: 20120821
  Receipt Date: 20120830
  Transmission Date: 20130627
  Serious: Yes (Death)
  Sender: FDA-Public Use
  Company Number: US-GENZYME-RENA-1001617

PATIENT
  Sex: Female

DRUGS (1)
  1. RENVELA [Suspect]
     Indication: RENAL FAILURE CHRONIC
     Dosage: 0.8 g, 15 tabs or 12 gm/day
     Route: 048
     Dates: start: 20120621

REACTIONS (1)
  - Death [Fatal]
